FAERS Safety Report 4714759-7 (Version None)
Quarter: 2005Q3

REPORT INFORMATION
  Report Type: 
  Country: None (occurrence: None)
  Receive Date: 20050713
  Receipt Date: 20050628
  Transmission Date: 20060218
  Serious: Yes (Hospitalization)
  Sender: FDA-Public Use
  Company Number: P200500014

PATIENT
  Age: 83 Year
  Sex: Male
  Weight: 83 kg

DRUGS (33)
  1. PLENAXIS [Suspect]
     Indication: PROSTATE CANCER
     Dosage: 100 MG, SINGLE, INTRAMUSCULAR
     Route: 030
     Dates: start: 20040824, end: 20040824
  2. PLENAXIS [Suspect]
     Indication: PROSTATE CANCER
     Dosage: 100 MG, SINGLE, INTRAMUSCULAR
     Route: 030
     Dates: start: 20040907, end: 20040907
  3. PLENAXIS [Suspect]
     Indication: PROSTATE CANCER
     Dosage: 100 MG, SINGLE, INTRAMUSCULAR
     Route: 030
     Dates: start: 20041004, end: 20041004
  4. PLENAXIS [Suspect]
     Indication: PROSTATE CANCER
     Dosage: 100 MG, SINGLE, INTRAMUSCULAR
     Route: 030
     Dates: start: 20041102, end: 20041102
  5. PLENAXIS [Suspect]
     Indication: PROSTATE CANCER
     Dosage: 100 MG, SINGLE, INTRAMUSCULAR
     Route: 030
     Dates: start: 20041202, end: 20041202
  6. PLENAXIS [Suspect]
     Indication: PROSTATE CANCER
     Dosage: 100 MG, SINGLE, INTRAMUSCULAR
     Route: 030
     Dates: start: 20050106, end: 20050106
  7. PLENAXIS [Suspect]
     Indication: PROSTATE CANCER
     Dosage: 100 MG, SINGLE, INTRAMUSCULAR
     Route: 030
     Dates: start: 20050211, end: 20050211
  8. PLENAXIS [Suspect]
     Indication: PROSTATE CANCER
     Dosage: 100 MG, SINGLE, INTRAMUSCULAR
     Route: 030
     Dates: start: 20050310, end: 20050310
  9. PLENAXIS [Suspect]
     Indication: PROSTATE CANCER
     Dosage: 100 MG, SINGLE, INTRAMUSCULAR
     Route: 030
     Dates: start: 20050407, end: 20050407
  10. PLENAXIS [Suspect]
     Indication: PROSTATE CANCER
     Dosage: 100 MG, SINGLE, INTRAMUSCULAR
     Route: 030
     Dates: start: 20050505, end: 20050505
  11. PLENAXIS [Suspect]
     Indication: PROSTATE CANCER
     Dosage: 100 MG, SINGLE, INTRAMUSCULAR
     Route: 030
     Dates: start: 20050616, end: 20050616
  12. PLENAXIS [Suspect]
  13. PROSCAR [Concomitant]
  14. NEXIUM [Concomitant]
  15. FLOMAX [Concomitant]
  16. KETOCONAZOLE [Concomitant]
  17. PREDNISONE [Concomitant]
  18. BISOPROLOL W/HYDROCHLOROTHIAZIDE (HYDROCHLOROTHIAZIDE,BISOPROLOL) [Concomitant]
  19. MULTIVITAMINS (RIBOFLAVIN, RETINOL, PANTHENOL, FOLIC ACID, ERGOCALCIFE [Concomitant]
  20. DETROL - SLOW RELEASE (TOLTERODINE L-TARTRATE) [Concomitant]
  21. BACTRIM [Concomitant]
  22. AMOXICILLIN [Concomitant]
  23. URECHOLINE [Concomitant]
  24. CIPROXIN /DEN/ (CIPROFLOXACIN) [Concomitant]
  25. FUROSEMIDE [Concomitant]
  26. KLOR-CON [Concomitant]
  27. LUPRON [Concomitant]
  28. FERROUS GLUCONATE (FERROUS GLUCONATE) [Concomitant]
  29. GEMIFLOXACIN (GEMIFLOXACIN) [Concomitant]
  30. COUMADIN [Concomitant]
  31. WARFARIN SODIUM [Concomitant]
  32. LASIX [Concomitant]
  33. .. [Concomitant]

REACTIONS (29)
  - ASTHENIA [None]
  - BLOOD CHLORIDE INCREASED [None]
  - BLOOD PHOSPHORUS INCREASED [None]
  - BLOOD PRESSURE SYSTOLIC INCREASED [None]
  - BODY TEMPERATURE DECREASED [None]
  - BRONCHITIS ACUTE [None]
  - CARBON DIOXIDE DECREASED [None]
  - CHILLS [None]
  - COLON ADENOMA [None]
  - COUGH [None]
  - DIARRHOEA [None]
  - HAEMATOCRIT DECREASED [None]
  - HAEMOGLOBIN DECREASED [None]
  - HEADACHE [None]
  - HEART RATE DECREASED [None]
  - HYDRONEPHROSIS [None]
  - HYPERKALAEMIA [None]
  - INTERNATIONAL NORMALISED RATIO INCREASED [None]
  - MELAENA [None]
  - MONOCYTE COUNT INCREASED [None]
  - MYALGIA [None]
  - OEDEMA [None]
  - PARAESTHESIA [None]
  - PROSTATIC OBSTRUCTION [None]
  - PROSTATIC SPECIFIC ANTIGEN INCREASED [None]
  - PROTHROMBIN TIME PROLONGED [None]
  - PYREXIA [None]
  - RENAL FAILURE ACUTE [None]
  - RESPIRATORY RATE INCREASED [None]
